FAERS Safety Report 4868832-3 (Version None)
Quarter: 2005Q4

REPORT INFORMATION
  Report Type: 
  Country: None (occurrence: None)
  Receive Date: 20051223
  Receipt Date: 20051215
  Transmission Date: 20060501
  Serious: Yes (Hospitalization)
  Sender: FDA-Public Use
  Company Number: 2005161622

PATIENT
  Age: 22 Year
  Sex: Male

DRUGS (4)
  1. LITHIUM CARBONATE [Suspect]
     Indication: MANIA
     Dosage: 1200 MG DAILY
  2. LITHIUM CARBONATE [Suspect]
     Indication: SCHIZOAFFECTIVE DISORDER
     Dosage: 1200 MG DAILY
  3. ZIPRASIDONE (IM) (ZIPRASIDONE) [Suspect]
     Indication: ILL-DEFINED DISORDER
     Dosage: 80 MG DAILY INTRAMUSCULAR
     Route: 030
  4. ALL OTHER THERAPEUTIC PRODUCTS (ALL OTHER THERAPEUTIC PRODUCTS) [Suspect]
     Indication: SCHIZOAFFECTIVE DISORDER

REACTIONS (7)
  - AGGRESSION [None]
  - DIARRHOEA [None]
  - DRUG LEVEL ABOVE THERAPEUTIC [None]
  - DRUG TOXICITY [None]
  - IRRITABILITY [None]
  - PSYCHOTIC DISORDER [None]
  - SOMNOLENCE [None]
